FAERS Safety Report 6404675-7 (Version None)
Quarter: 2009Q4

REPORT INFORMATION
  Report Type: 
  Country: None (occurrence: None)
  Receive Date: 20091016
  Receipt Date: 20091013
  Transmission Date: 20100525
  Serious: Yes (Life-Threatening)
  Sender: FDA-Public Use
  Company Number: US-ABBOTT-09P-163-0602622-00

PATIENT
  Sex: Male
  Weight: 76 kg

DRUGS (6)
  1. RITONAVIR [Suspect]
     Indication: HIV INFECTION
     Route: 048
     Dates: start: 20090813, end: 20091007
  2. EMTRICITABINE [Concomitant]
     Indication: HIV INFECTION
     Dosage: 200/300 MG
     Route: 048
     Dates: start: 20090813, end: 20091007
  3. TENOFOVIR DISOPROXIL FUMARATE [Concomitant]
     Indication: HIV INFECTION
     Dosage: 200/300 MG
     Route: 048
     Dates: start: 20090813, end: 20091007
  4. ATAZANAVIR [Concomitant]
     Indication: HIV INFECTION
     Dosage: 300 MG
     Route: 048
     Dates: start: 20090813, end: 20091007
  5. DIPHENHYDRAMINE HCL [Concomitant]
     Indication: RASH
     Route: 048
     Dates: end: 20091007
  6. NAPROXEN [Concomitant]
     Indication: ANALGESIC THERAPY
     Route: 048
     Dates: end: 20091007

REACTIONS (2)
  - HEPATITIS [None]
  - TRANSAMINASES INCREASED [None]
